FAERS Safety Report 6977311-9 (Version None)
Quarter: 2010Q3

REPORT INFORMATION
  Report Type: 
  Country: None (occurrence: None)
  Receive Date: 20100910
  Receipt Date: 20100810
  Transmission Date: 20110219
  Serious: No
  Sender: FDA-Public Use
  Company Number: US-BAYER-201030428NA

PATIENT
  Sex: Male
  Weight: 64 kg

DRUGS (1)
  1. ULTRAVIST 300 [Suspect]
     Indication: COMPUTERISED TOMOGRAM THORAX
     Dosage: AS USED: `100 ML  UNIT DOSE: 200 ML
     Route: 042
     Dates: start: 20100810, end: 20100810

REACTIONS (1)
  - URTICARIA [None]
